FAERS Safety Report 7951384-9 (Version None)
Quarter: 2011Q4

REPORT INFORMATION
  Report Type: 
  Country: None (occurrence: None)
  Receive Date: 20111129
  Receipt Date: 20111115
  Transmission Date: 20120403
  Serious: Yes (Hospitalization)
  Sender: FDA-Public Use
  Company Number: 2011SP051189

PATIENT

DRUGS (2)
  1. BOCEPREVIR (SCH-503034) [Suspect]
     Indication: PRODUCT USED FOR UNKNOWN INDICATION
  2. PEG-INTRON [Suspect]
     Indication: PRODUCT USED FOR UNKNOWN INDICATION
     Dosage: 135 MCG

REACTIONS (6)
  - OPTIC NERVE DISORDER [None]
  - NEUTROPENIC SEPSIS [None]
  - MENINGITIS [None]
  - PANCYTOPENIA [None]
  - MUCOSAL INFLAMMATION [None]
  - ENCEPHALITIS HERPES [None]
